FAERS Safety Report 24326238 (Version 1)
Quarter: 2024Q3

REPORT INFORMATION
  Report Type: Spontaneous
  Country: US (occurrence: US)
  Receive Date: 20240917
  Receipt Date: 20240917
  Transmission Date: 20241017
  Serious: No
  Sender: RANBAXY
  Company Number: US-SUN PHARMACEUTICAL INDUSTRIES LTD-2024R1-453807

PATIENT
  Sex: Female

DRUGS (1)
  1. ALBUTEROL [Suspect]
     Active Substance: ALBUTEROL
     Indication: Idiopathic pulmonary fibrosis
     Dosage: UNK UNK, BID

REACTIONS (3)
  - Nervousness [Unknown]
  - Product physical issue [Unknown]
  - Packaging design issue [Unknown]
